FAERS Safety Report 9121566 (Version 3)
Quarter: 2013Q2

REPORT INFORMATION
  Report Type: Spontaneous
  Country: US (occurrence: US)
  Receive Date: 20130227
  Receipt Date: 20130513
  Transmission Date: 20140414
  Serious: Yes (Death, Hospitalization)
  Sender: FDA-Public Use
  Company Number: US-BIOGENIDEC-2013BI017229

PATIENT
  Age: 70 Year
  Sex: Female

DRUGS (20)
  1. TYSABRI [Suspect]
     Indication: MULTIPLE SCLEROSIS
     Route: 042
     Dates: start: 20070405, end: 20120905
  2. TYSABRI [Suspect]
     Indication: MULTIPLE SCLEROSIS
     Route: 042
     Dates: start: 20121116, end: 20130111
  3. METHADONE [Concomitant]
     Route: 048
  4. APLUZIN [Concomitant]
     Route: 048
  5. TOPAMAX [Concomitant]
     Route: 048
  6. ADDERALL [Concomitant]
     Indication: FATIGUE
     Route: 048
  7. BUMETANIDE [Concomitant]
  8. LIPITOR [Concomitant]
  9. EFFEXOR [Concomitant]
  10. STEROID [Concomitant]
     Route: 061
  11. VITAMIN D [Concomitant]
     Route: 048
  12. CYMBALTA [Concomitant]
     Route: 048
  13. CALCIUM [Concomitant]
  14. K LOR [Concomitant]
  15. PEPCID [Concomitant]
  16. TERAZOSIN [Concomitant]
  17. MIRALAX [Concomitant]
  18. CARTIA XT [Concomitant]
  19. CENTRUM [Concomitant]
  20. SAPHRIS [Concomitant]

REACTIONS (3)
  - Progressive multifocal leukoencephalopathy [Fatal]
  - Macular degeneration [Unknown]
  - Pemphigoid [Unknown]
